FAERS Safety Report 6996953-8 (Version None)
Quarter: 2010Q3

REPORT INFORMATION
  Report Type: 
  Country: None (occurrence: None)
  Receive Date: 20100918
  Receipt Date: 20090928
  Transmission Date: 20110219
  Serious: No
  Sender: FDA-Public Use
  Company Number: US-WYE-H10763609

PATIENT
  Sex: Female
  Weight: 59.02 kg

DRUGS (5)
  1. EFFEXOR XR [Suspect]
     Indication: DEPRESSION
     Route: 048
     Dates: start: 20090821, end: 20090801
  2. EFFEXOR XR [Suspect]
     Indication: ANXIETY
     Route: 048
     Dates: start: 20090801
  3. EFFEXOR XR [Suspect]
     Indication: IRRITABILITY
  4. THYROID TAB [Concomitant]
  5. ATENOLOL [Concomitant]

REACTIONS (6)
  - DECREASED APPETITE [None]
  - EMOTIONAL DISORDER [None]
  - FEELING JITTERY [None]
  - HOT FLUSH [None]
  - HYPERHIDROSIS [None]
  - MIDDLE INSOMNIA [None]
